FAERS Safety Report 18523167 (Version 1)
Quarter: 2020Q4

REPORT INFORMATION
  Report Type: Spontaneous
  Country: DE (occurrence: DE)
  Receive Date: 20201119
  Receipt Date: 20201119
  Transmission Date: 20210114
  Serious: Yes (Hospitalization)
  Sender: FDA-Public Use
  Company Number: DE-TEVA-2020-DE-1849600

PATIENT
  Age: 79 Year
  Sex: Female
  Weight: 62 kg

DRUGS (5)
  1. BISOPROLOL [Concomitant]
     Active Substance: BISOPROLOL
     Dosage: 5 MILLIGRAM DAILY;  1-0-0-0
  2. PANTOPRAZOL [Concomitant]
     Active Substance: PANTOPRAZOLE SODIUM
     Dosage: 40 MG, AS NEEDED
  3. LISINOPRIL. [Concomitant]
     Active Substance: LISINOPRIL
     Dosage: 20 MILLIGRAM DAILY;  1-0-0-0
  4. CLOPIDOGREL [Suspect]
     Active Substance: CLOPIDOGREL BISULFATE
     Dosage: 75 MILLIGRAM DAILY;  1-0-0-0
  5. METAMIZOL [Concomitant]
     Active Substance: METAMIZOLE SODIUM
     Dosage: 500 MG, AS NEEDED

REACTIONS (2)
  - Abdominal pain upper [Unknown]
  - Haematochezia [Unknown]
